FAERS Safety Report 11592932 (Version 2)
Quarter: 2017Q4

REPORT INFORMATION
  Report Type: Spontaneous
  Country: ES (occurrence: ES)
  Receive Date: 20151005
  Receipt Date: 20171212
  Transmission Date: 20180320
  Serious: Yes (Other)
  Sender: FDA-Public Use
  Company Number: ES-APOTEX-2015AP013183

PATIENT
  Age: 56 Year
  Sex: Female

DRUGS (8)
  1. AMITRIPTYLINE [Suspect]
     Active Substance: AMITRIPTYLINE
     Indication: PRODUCT USED FOR UNKNOWN INDICATION
     Dosage: 10 MG/ DAY
     Route: 065
  2. DULOXETINA APOTEX CAPSULAS DURAS GASTRORRESISTENTES EFG [Suspect]
     Active Substance: DULOXETINE
     Indication: DEPRESSION
     Dosage: 30 MG/DAY
     Route: 065
  3. GABAPENTIN. [Suspect]
     Active Substance: GABAPENTIN
     Indication: NEURALGIA
     Dosage: 1200 MG/DAY
     Route: 065
  4. GABAPENTIN. [Suspect]
     Active Substance: GABAPENTIN
     Dosage: 1500 MG/DAY
     Route: 065
  5. GABAPENTIN. [Suspect]
     Active Substance: GABAPENTIN
     Dosage: 2200 MG/DAY
     Route: 065
  6. GABAPENTIN. [Suspect]
     Active Substance: GABAPENTIN
     Dosage: 1200 MG/DAY
     Route: 065
  7. TRAMADOL RETARD APOTEX [Suspect]
     Active Substance: TRAMADOL
     Indication: PRODUCT USED FOR UNKNOWN INDICATION
     Dosage: 100 MG/DAY
     Route: 065
  8. TRAMADOL RETARD APOTEX [Suspect]
     Active Substance: TRAMADOL
     Dosage: 50 MG/DAY
     Route: 065

REACTIONS (7)
  - Drug intolerance [Unknown]
  - Substance-induced psychotic disorder [None]
  - Hypertension [Recovered/Resolved]
  - Rash pruritic [Recovered/Resolved]
  - Rash generalised [None]
  - Hallucination, visual [Recovered/Resolved]
  - Psychotic disorder due to a general medical condition [Recovered/Resolved]
